FAERS Safety Report 7209324-6 (Version None)
Quarter: 2011Q1

REPORT INFORMATION
  Report Type: 
  Country: None (occurrence: None)
  Receive Date: 20110104
  Receipt Date: 20110102
  Transmission Date: 20110831
  Serious: Yes (Death, Hospitalization)
  Sender: FDA-Public Use
  Company Number: IR-ROCHE-745117

PATIENT
  Age: 56 Year
  Sex: Male

DRUGS (2)
  1. EPREX [Concomitant]
     Dosage: DOSE: 12000 UNIT
     Dates: start: 20101001
  2. MIRCERA [Suspect]
     Dosage: FREQUENCY: DAILY
     Route: 042
     Dates: start: 20101101

REACTIONS (3)
  - ANAEMIA [None]
  - HYPERTENSION [None]
  - CARDIAC ARREST [None]
